FAERS Safety Report 8803733 (Version 1)
Quarter: 2012Q4

REPORT INFORMATION
  Report Type: 
  Country: US (occurrence: US)
  Receive Date: 20120924
  Receipt Date: 20120924
  Transmission Date: 20130627
  Serious: Yes (Other)
  Sender: FDA-Public Use
  Company Number: US-PFIZER INC-2012232238

PATIENT
  Age: 88 Year
  Sex: Female
  Weight: 45.4 kg

DRUGS (4)
  1. PREMARIN [Suspect]
     Indication: VAGINAL HAEMORRHAGE
     Dosage: UNK, 2x/week
     Route: 067
     Dates: start: 2007
  2. SYNTHROID [Suspect]
     Indication: THYROID DISORDER
     Dosage: 25 ug, 1x/day
  3. SYNTHROID [Suspect]
     Dosage: 50 mg, 1x/day
  4. SALAGEN [Concomitant]
     Indication: SJOGREN^S SYNDROME
     Dosage: 5 mg, 1x/day

REACTIONS (3)
  - Liver disorder [Unknown]
  - Drug dose omission [Unknown]
  - Drug administration error [Unknown]
